FAERS Safety Report 25540002 (Version 1)
Quarter: 2025Q3

REPORT INFORMATION
  Report Type: Spontaneous
  Country: EU (occurrence: EU)
  Receive Date: 20250710
  Receipt Date: 20250710
  Transmission Date: 20251020
  Serious: Yes (Other)
  Sender: ELI LILLY AND COMPANY
  Company Number: EU-ELI_LILLY_AND_COMPANY-DE202507000551

PATIENT
  Age: 72 Year
  Sex: Male

DRUGS (2)
  1. OLUMIANT [Suspect]
     Active Substance: BARICITINIB
     Indication: Rheumatoid arthritis
     Dosage: 4 MG, DAILY
     Route: 065
     Dates: start: 2020
  2. CORTISONE [Concomitant]
     Active Substance: CORTISONE
     Indication: Product used for unknown indication

REACTIONS (1)
  - Bronchial carcinoma [Not Recovered/Not Resolved]

NARRATIVE: CASE EVENT DATE: 20250101
